FAERS Safety Report 17044056 (Version 3)
Quarter: 2019Q4

REPORT INFORMATION
  Report Type: Report from Study
  Country: JP (occurrence: JP)
  Receive Date: 20191118
  Receipt Date: 20191203
  Transmission Date: 20200122
  Serious: Yes (Hospitalization)
  Sender: FDA-Public Use
  Company Number: JP-EISAI MEDICAL RESEARCH-EC-2019-065427

PATIENT
  Age: 72 Year
  Sex: Female
  Weight: 53 kg

DRUGS (18)
  1. EVEROLIMUS. [Suspect]
     Active Substance: EVEROLIMUS
     Dates: start: 20190802, end: 20191112
  2. LENVATINIB [Suspect]
     Active Substance: LENVATINIB
     Indication: RENAL CELL CARCINOMA
     Route: 048
     Dates: start: 20190524, end: 20190607
  3. EVEROLIMUS. [Suspect]
     Active Substance: EVEROLIMUS
     Dates: start: 20190614, end: 20190714
  4. FUROSEMIDE. [Concomitant]
     Active Substance: FUROSEMIDE
  5. DRENISON [Concomitant]
     Active Substance: FLURANDRENOLIDE
  6. CLOBETASOL PROPIONATE. [Concomitant]
     Active Substance: CLOBETASOL PROPIONATE
  7. LENVATINIB [Suspect]
     Active Substance: LENVATINIB
     Route: 048
     Dates: start: 20190802, end: 20191112
  8. EVEROLIMUS. [Suspect]
     Active Substance: EVEROLIMUS
     Indication: RENAL CELL CARCINOMA
     Dates: start: 20190524, end: 20190607
  9. TRIAMCINOLONE ACETONIDE. [Concomitant]
     Active Substance: TRIAMCINOLONE ACETONIDE
  10. ADALAT CC [Concomitant]
     Active Substance: NIFEDIPINE
  11. FEBURIC [Concomitant]
     Active Substance: FEBUXOSTAT
  12. MYALONE [Concomitant]
  13. AZULENE [Concomitant]
     Active Substance: AZULENE
  14. LENVATINIB [Suspect]
     Active Substance: LENVATINIB
     Route: 048
     Dates: start: 20190614, end: 20190714
  15. ETIZOLAM [Concomitant]
     Active Substance: ETIZOLAM
  16. IRBESARTAN. [Concomitant]
     Active Substance: IRBESARTAN
  17. VEGIN [Concomitant]
  18. THYRADIN S [Concomitant]
     Active Substance: LEVOTHYROXINE SODIUM

REACTIONS (2)
  - Cholecystitis [Recovering/Resolving]
  - Proteinuria [Recovering/Resolving]

NARRATIVE: CASE EVENT DATE: 20191112
